FAERS Safety Report 20872021 (Version 1)
Quarter: 2022Q2

REPORT INFORMATION
  Report Type: Spontaneous
  Country: AT (occurrence: AT)
  Receive Date: 20220525
  Receipt Date: 20220525
  Transmission Date: 20220721
  Serious: Yes (Hospitalization)
  Sender: FDA-Public Use
  Company Number: None

PATIENT
  Age: 66 Year
  Sex: Male
  Weight: 92 kg

DRUGS (2)
  1. TRADJENTA [Suspect]
     Active Substance: LINAGLIPTIN
     Indication: Product used for unknown indication
     Route: 048
     Dates: start: 20200803, end: 20220321
  2. METFORMIN [Concomitant]
     Active Substance: METFORMIN HYDROCHLORIDE
     Indication: Product used for unknown indication

REACTIONS (1)
  - Chills [Recovered/Resolved]

NARRATIVE: CASE EVENT DATE: 20220321
